FAERS Safety Report 8168873-7 (Version None)
Quarter: 2012Q1

REPORT INFORMATION
  Report Type: 
  Country: None (occurrence: None)
  Receive Date: 20120227
  Receipt Date: 20120214
  Transmission Date: 20120608
  Serious: Yes (Hospitalization)
  Sender: FDA-Public Use
  Company Number: AU-MYLANLABS-2012S1003543

PATIENT
  Age: 74 Year
  Sex: Male

DRUGS (1)
  1. MELOXICAM [Suspect]
     Indication: PAIN IN JAW
     Route: 065

REACTIONS (4)
  - RENAL FAILURE ACUTE [None]
  - LYMPHOPENIA [None]
  - RHABDOMYOLYSIS [None]
  - EOSINOPHILIA [None]
